FAERS Safety Report 8598620-6 (Version None)
Quarter: 2012Q3

REPORT INFORMATION
  Report Type: 
  Country: None (occurrence: None)
  Receive Date: 20120816
  Receipt Date: 20120112
  Transmission Date: 20120928
  Serious: Yes (Hospitalization)
  Sender: FDA-Public Use
  Company Number: US-ROCHE-1099842

PATIENT
  Age: 47 Year
  Sex: Male

DRUGS (5)
  1. ACTIVASE [Suspect]
     Indication: ACUTE MYOCARDIAL INFARCTION
  2. HYDROCHLORIDE (UNK INGREDIENTS) [Concomitant]
  3. POTASSIUM CHLORIDE [Concomitant]
  4. TOLINASE [Concomitant]
  5. NITRODISC [Concomitant]

REACTIONS (2)
  - PAIN [None]
  - BLOOD PRESSURE DIASTOLIC INCREASED [None]
